FAERS Safety Report 4607499-6 (Version None)
Quarter: 2005Q1

REPORT INFORMATION
  Report Type: 
  Country: None (occurrence: None)
  Receive Date: 20050309
  Receipt Date: 20050224
  Transmission Date: 20050727
  Serious: Yes (Disabling)
  Sender: FDA-Public Use
  Company Number: 2004AP03876

PATIENT
  Age: 49 Year
  Sex: Female

DRUGS (8)
  1. IRESSA [Suspect]
     Indication: LUNG ADENOCARCINOMA
     Dosage: 250 MG DAILY PO
     Route: 048
     Dates: start: 20020930, end: 20040108
  2. IRESSA [Suspect]
     Indication: LUNG NEOPLASM MALIGNANT
     Dosage: 250 MG DAILY PO
     Route: 048
     Dates: start: 20020930, end: 20040108
  3. CISPLATIN [Suspect]
     Dosage: 60 MG/M2 ONCE
     Dates: start: 20010201, end: 20010401
  4. DOCETAXEL [Suspect]
     Dosage: 60 MG/M2 ONCE
     Dates: start: 20010201, end: 20010401
  5. IRINOTECAN HCL [Suspect]
     Dosage: 50 MG/M2 ONCE
     Dates: start: 20010201, end: 20010401
  6. PURSENNID [Concomitant]
  7. CELESTONE [Concomitant]
  8. RADIATION THERAPY [Concomitant]

REACTIONS (5)
  - ACUTE PROMYELOCYTIC LEUKAEMIA [None]
  - LUNG ADENOCARCINOMA RECURRENT [None]
  - METASTASES TO LYMPH NODES [None]
  - RASH [None]
  - THERAPEUTIC RESPONSE DECREASED [None]
